FAERS Safety Report 10035607 (Version 5)
Quarter: 2014Q2

REPORT INFORMATION
  Report Type: Spontaneous
  Country: NZ (occurrence: NZ)
  Receive Date: 20140325
  Receipt Date: 20140424
  Transmission Date: 20141212
  Serious: Yes (Other)
  Sender: FDA-Public Use
  Company Number: NZ-ABBVIE-13P-118-1183182-00

PATIENT
  Age: 42 Year
  Sex: Female

DRUGS (1)
  1. HUMIRA [Suspect]
     Indication: CROHN^S DISEASE

REACTIONS (17)
  - Vocal cord disorder [Recovering/Resolving]
  - Pneumothorax [Unknown]
  - Reflux laryngitis [Unknown]
  - Granuloma [Unknown]
  - Epiglottic mass [Recovered/Resolved]
  - Mass [Unknown]
  - Polyp [Unknown]
  - Cough [Not Recovered/Not Resolved]
  - Pharyngitis [Not Recovered/Not Resolved]
  - Sinusitis [Not Recovered/Not Resolved]
  - Infection [Not Recovered/Not Resolved]
  - Infection [Not Recovered/Not Resolved]
  - Laryngeal injury [Unknown]
  - Pneumothorax [Unknown]
  - Upper-airway cough syndrome [Unknown]
  - Endotracheal intubation complication [Unknown]
  - Scar [Unknown]
